FAERS Safety Report 7621850-4 (Version None)
Quarter: 2011Q3

REPORT INFORMATION
  Report Type: 
  Country: None (occurrence: None)
  Receive Date: 20110720
  Receipt Date: 20110711
  Transmission Date: 20111222
  Serious: No
  Sender: FDA-Public Use
  Company Number: US-BIOGENIDEC-2011BI002374

PATIENT
  Age: 42 Year
  Sex: Female

DRUGS (1)
  1. TYSABRI [Suspect]
     Indication: MULTIPLE SCLEROSIS
     Route: 042
     Dates: start: 20100315

REACTIONS (7)
  - PAIN [None]
  - VERTIGO [None]
  - NAUSEA [None]
  - HYPOAESTHESIA [None]
  - RHINORRHOEA [None]
  - PYREXIA [None]
  - FATIGUE [None]
